FAERS Safety Report 12353775 (Version 3)
Quarter: 2016Q3

REPORT INFORMATION
  Report Type: Report from Study
  Country: US (occurrence: US)
  Receive Date: 20160511
  Receipt Date: 20160917
  Transmission Date: 20161109
  Serious: Yes (Hospitalization, Other)
  Sender: FDA-Public Use
  Company Number: PHEH2016US011209

PATIENT
  Sex: Male

DRUGS (4)
  1. EXTAVIA [Suspect]
     Active Substance: INTERFERON BETA-1B
     Indication: MULTIPLE SCLEROSIS
     Dosage: WEEK 1-2, 0.062 MG, (0.25 ML), QOD
     Route: 058
     Dates: start: 20160426
  2. EXTAVIA [Suspect]
     Active Substance: INTERFERON BETA-1B
     Dosage: WEEK 7+, 0.25 MG, QOD
     Route: 058
  3. EXTAVIA [Suspect]
     Active Substance: INTERFERON BETA-1B
     Dosage: WEEK 3-4, 0.125 MG, (0.5 ML), QOD
     Route: 058
  4. EXTAVIA [Suspect]
     Active Substance: INTERFERON BETA-1B
     Dosage: WEEK 5-6, 0.187 MG, (0.75 ML), QOD
     Route: 058

REACTIONS (11)
  - Nausea [Unknown]
  - Injection site scar [Unknown]
  - Cervical vertebral fracture [Recovering/Resolving]
  - Tremor [Unknown]
  - Blood glucose increased [Unknown]
  - Chills [Unknown]
  - Depression [Recovering/Resolving]
  - Product preparation error [Unknown]
  - Memory impairment [Unknown]
  - Restlessness [Unknown]
  - Fall [Unknown]
